FAERS Safety Report 7896628-7 (Version None)
Quarter: 2011Q4

REPORT INFORMATION
  Report Type: 
  Country: None (occurrence: None)
  Receive Date: 20111107
  Receipt Date: 20111028
  Transmission Date: 20120403
  Serious: Yes (Hospitalization)
  Sender: FDA-Public Use
  Company Number: US-BIOGENIDEC-2011BI041158

PATIENT
  Age: 43 Year
  Sex: Female

DRUGS (5)
  1. AVONEX [Suspect]
     Indication: MULTIPLE SCLEROSIS
     Route: 030
     Dates: start: 20061008, end: 20080402
  2. AVONEX [Suspect]
     Route: 030
     Dates: start: 20080621, end: 20090115
  3. AVONEX [Suspect]
     Route: 030
     Dates: start: 20100326, end: 20100701
  4. AVONEX [Suspect]
     Route: 030
     Dates: start: 20100901
  5. TYSABRI [Concomitant]
     Indication: MULTIPLE SCLEROSIS
     Route: 042
     Dates: start: 20100914, end: 20110401

REACTIONS (1)
  - CHOLELITHIASIS [None]
